FAERS Safety Report 5724790-0 (Version None)
Quarter: 2008Q2

REPORT INFORMATION
  Report Type: 
  Country: None (occurrence: None)
  Receive Date: 20080501
  Receipt Date: 20080422
  Transmission Date: 20081010
  Serious: Yes (Death)
  Sender: FDA-Public Use
  Company Number: TR-JNJFOC-20080406287

PATIENT
  Age: 45 Year
  Sex: Male

DRUGS (6)
  1. REMICADE [Suspect]
     Indication: CROHN'S DISEASE
  2. ISONIAZID [Concomitant]
  3. CIPROFLOXACIN [Concomitant]
  4. METRONIDAZOLE HCL [Concomitant]
  5. AZATHIOPRINE [Concomitant]
  6. ENSURE PLUS [Concomitant]
     Indication: MEDICAL DIET

REACTIONS (2)
  - DEEP VEIN THROMBOSIS [None]
  - PULMONARY EMBOLISM [None]
